FAERS Safety Report 5679961-9 (Version None)
Quarter: 2008Q1

REPORT INFORMATION
  Report Type: 
  Country: None (occurrence: None)
  Receive Date: 20080324
  Receipt Date: 20080307
  Transmission Date: 20080703
  Serious: Yes (Disabling, Other)
  Sender: FDA-Public Use
  Company Number: GXR2008CA02451

PATIENT
  Sex: Male

DRUGS (1)
  1. PREDNISOLONE [Suspect]
     Indication: CATARACT OPERATION
     Dosage: OPTHALMIC
     Dates: start: 20060101

REACTIONS (2)
  - BLINDNESS [None]
  - DRUG DISPENSING ERROR [None]
